FAERS Safety Report 21342068 (Version 1)
Quarter: 2022Q3

REPORT INFORMATION
  Report Type: Spontaneous
  Country: BE (occurrence: BE)
  Receive Date: 20220916
  Receipt Date: 20220916
  Transmission Date: 20221027
  Serious: Yes (Other)
  Sender: FDA-Public Use
  Company Number: None

PATIENT
  Age: 50 Year
  Sex: Female
  Weight: 66 kg

DRUGS (12)
  1. CARBOPLATIN [Suspect]
     Active Substance: CARBOPLATIN
     Indication: Product used for unknown indication
     Dosage: CARBOPLATINUM
     Route: 065
  2. MEDROL [Concomitant]
     Active Substance: METHYLPREDNISOLONE
     Indication: Product used for unknown indication
     Dosage: IN THE MORNING, FORM STRENGTH :  32MG , UNIT DOSE : 1 DF , FREQUENCY TIME : 1 DAY
  3. ACETAMINOPHEN [Concomitant]
     Active Substance: ACETAMINOPHEN
     Indication: Pain
     Dosage: IF NECESSARY IN CASE OF PAIN, EVERY 6 HOURS 1 G , UNIT DOSE : 1 DF , FREQUENCY TIME : 1 AS REQUIRED
  4. ALIZAPRIDE HYDROCHLORIDE [Concomitant]
     Active Substance: ALIZAPRIDE HYDROCHLORIDE
     Indication: Nausea
     Dosage: FORM STRENGTH : 50 MG, UNIT DOSE : 1 DF , FREQUENCY TIME : 4 HOUR
  5. BOOSTRIX [Concomitant]
     Active Substance: TETANUS TOXOID, REDUCED DIPHTHERIA TOXOID AND ACELLULAR PERTUSSIS VACCINE, ADSORBED ANTIGENS
     Indication: Tetanus immunisation
  6. AUGMENTIN [Concomitant]
     Active Substance: AMOXICILLIN\CLAVULANATE POTASSIUM
     Indication: Product used for unknown indication
     Dosage: FORM STRENGTH : 875 MG , UNIT DOSE : 1 DF , FREQUENCY TIME : 8 HOUR
  7. ENOXAPARIN SODIUM [Concomitant]
     Active Substance: ENOXAPARIN SODIUM
     Indication: Product used for unknown indication
     Dosage: AT 8 PM UP TO 30 DAYS AFTER HOSPITAL DISCHARGE,  40 MG/0.4 ML ,UNIT DOSE : 1 DF , FREQUENCY TIME : 1
  8. MOVICOL [Concomitant]
     Active Substance: POLYETHYLENE GLYCOL 3350\POTASSIUM CHLORIDE\SODIUM BICARBONATE\SODIUM CHLORIDE
     Indication: Constipation
     Dosage: SACHET POWDER FOR ORAL SOLUTION , UNIT DOSE : 1 DF , FREQUENCY TIME : 12 HOUR
  9. IBUPROFEN [Concomitant]
     Active Substance: IBUPROFEN
     Indication: Pain
     Dosage: UP TO 3X/DAY, 2ND CHOICE FOR PAIN AFTER PARACETAMOL , FORM STRENGTH :  400 MG , UNIT DOSE : 1 DF , F
  10. DIPROSONE [Concomitant]
     Active Substance: BETAMETHASONE DIPROPIONATE
     Indication: Product used for unknown indication
     Dosage: 1X/DAY NECK, 2X/DAY BREASTS, FORM STRENGTH :  0.05 %
  11. CETIRIZINE HYDROCHLORIDE [Concomitant]
     Active Substance: CETIRIZINE HYDROCHLORIDE
     Indication: Product used for unknown indication
     Dosage: IN THE EVENING, FORM STRENGTH : 10 MG , UNIT DOSE : 1 DF , FREQUENCY TIME : 1 DAY
  12. BISOPROLOL FUMARATE [Concomitant]
     Active Substance: BISOPROLOL FUMARATE
     Indication: Product used for unknown indication
     Dosage: FORM STRENGTH : 2.5MG , UNIT DOSE : 0.5 DF , FREQUENCY TIME : 1 DAY

REACTIONS (3)
  - Dyspnoea [Recovered/Resolved]
  - Angioedema [Recovered/Resolved]
  - Oxygen saturation decreased [Recovered/Resolved]

NARRATIVE: CASE EVENT DATE: 20210326
